FAERS Safety Report 9460811 (Version 3)
Quarter: 2014Q1

REPORT INFORMATION
  Report Type: Spontaneous
  Country: US (occurrence: US)
  Receive Date: 20130815
  Receipt Date: 20140116
  Transmission Date: 20141002
  Serious: Yes (Hospitalization)
  Sender: FDA-Public Use
  Company Number: US-B.I. PHARMACEUTICALS,INC./RIDGEFIELD-2013-BI-23211BP

PATIENT
  Age: 76 Year
  Sex: Female

DRUGS (8)
  1. PRADAXA [Suspect]
     Indication: ATRIAL FIBRILLATION
     Dosage: 300 MG
     Dates: start: 20110922, end: 20111012
  2. COLACE [Concomitant]
     Dosage: 200 MG
     Dates: start: 201109
  3. CYMBALTA [Concomitant]
     Dates: start: 2000
  4. GABAPENTIN [Concomitant]
     Dosage: 300 MG
     Dates: start: 2005
  5. K-DUR [Concomitant]
     Dosage: 20 MEQ
     Dates: start: 2005
  6. SYNTHROID [Concomitant]
     Dosage: 150 MG
     Dates: start: 2005
  7. LASIX [Concomitant]
     Dosage: 40 MG
     Dates: start: 2005
  8. NIFEDIAC [Concomitant]
     Dates: start: 2005

REACTIONS (1)
  - Gastrointestinal haemorrhage [Unknown]
